FAERS Safety Report 23098491 (Version 2)
Quarter: 2024Q1

REPORT INFORMATION
  Report Type: Spontaneous
  Country: US (occurrence: US)
  Receive Date: 20231023
  Receipt Date: 20240118
  Transmission Date: 20240409
  Serious: No
  Sender: FDA-Public Use
  Company Number: US-SANDOZ-SDZ2023US045014

PATIENT
  Age: 66 Year
  Sex: Male

DRUGS (3)
  1. ENTRESTO [Suspect]
     Active Substance: SACUBITRIL\VALSARTAN
     Indication: Cardiac failure
     Dosage: 49.51 MG, BID
     Route: 048
     Dates: start: 202309
  2. LOSARTAN [Suspect]
     Active Substance: LOSARTAN
     Indication: Product used for unknown indication
     Route: 065
  3. METOPROLOL [Suspect]
     Active Substance: METOPROLOL
     Indication: Product used for unknown indication
     Dosage: 100 MG, QD
     Route: 048

REACTIONS (3)
  - Dyspnoea [Recovering/Resolving]
  - Heart rate decreased [Recovered/Resolved]
  - Pollakiuria [Unknown]

NARRATIVE: CASE EVENT DATE: 20230801
